FAERS Safety Report 18473499 (Version 1)
Quarter: 2020Q4

REPORT INFORMATION
  Report Type: Spontaneous
  Country: GB (occurrence: GB)
  Receive Date: 20201106
  Receipt Date: 20201106
  Transmission Date: 20210114
  Serious: Yes (Other)
  Sender: FDA-Public Use
  Company Number: GB-PFIZER INC-2020430785

PATIENT
  Age: 71 Year
  Sex: Male
  Weight: 78.4 kg

DRUGS (1)
  1. OXALIPLATIN. [Suspect]
     Active Substance: OXALIPLATIN
     Dosage: 165 MG
     Route: 042
     Dates: start: 20201013, end: 20201013

REACTIONS (3)
  - Paraesthesia oral [Unknown]
  - Lip erythema [Unknown]
  - Lip swelling [Recovered/Resolved]

NARRATIVE: CASE EVENT DATE: 20201013
